FAERS Safety Report 10574344 (Version 1)
Quarter: 2014Q4

REPORT INFORMATION
  Report Type: Spontaneous
  Country: US (occurrence: US)
  Receive Date: 20141110
  Receipt Date: 20141110
  Transmission Date: 20150529
  Serious: Yes (Other)
  Sender: FDA-Public Use
  Company Number: US-BAYER-2014-159553

PATIENT
  Sex: Female

DRUGS (1)
  1. CIPRO [Suspect]
     Active Substance: CIPROFLOXACIN HYDROCHLORIDE
     Indication: INFECTION
     Dosage: UNK
     Route: 048
     Dates: start: 20140728

REACTIONS (5)
  - Tendonitis [None]
  - Muscle disorder [None]
  - Peripheral swelling [None]
  - Arthropathy [None]
  - Myalgia [None]

NARRATIVE: CASE EVENT DATE: 2014
